FAERS Safety Report 9887941 (Version 1)
Quarter: 2014Q1

REPORT INFORMATION
  Report Type: Spontaneous
  Country: US (occurrence: None)
  Receive Date: 20140207
  Receipt Date: 20140207
  Transmission Date: 20141002
  Serious: No
  Sender: FDA-Public Use
  Company Number: None

PATIENT
  Sex: 0

DRUGS (5)
  1. HEPARIN [Suspect]
  2. TRANSDERM SCOP [Suspect]
  3. ALBUTEROL INHALER [Suspect]
  4. EXELON PATCH [Suspect]
  5. ERYTHOMYCIN OPHALMOLIC OINTMENT [Suspect]

REACTIONS (1)
  - Product barcode issue [None]
